FAERS Safety Report 5062150-9 (Version None)
Quarter: 2006Q3

REPORT INFORMATION
  Report Type: 
  Country: None (occurrence: None)
  Receive Date: 20060726
  Receipt Date: 20060719
  Transmission Date: 20061208
  Serious: Yes (Other)
  Sender: FDA-Public Use
  Company Number: PHEH2006US09240

PATIENT
  Sex: Female

DRUGS (1)
  1. TRILEPTAL [Suspect]
     Indication: EPILEPSY
     Dosage: 150 MG AM; 300 MG PM
     Route: 048

REACTIONS (4)
  - ASTHENIA [None]
  - BLOOD THYROID STIMULATING HORMONE DECREASED [None]
  - HYPOTHYROIDISM [None]
  - THYROXINE DECREASED [None]
